FAERS Safety Report 5776604-0 (Version None)
Quarter: 2008Q2

REPORT INFORMATION
  Report Type: 
  Country: None (occurrence: None)
  Receive Date: 20080618
  Receipt Date: 20080610
  Transmission Date: 20081010
  Serious: Yes (Hospitalization)
  Sender: FDA-Public Use
  Company Number: US-BRISTOL-MYERS SQUIBB COMPANY-14225734

PATIENT
  Age: 77 Year
  Sex: Male

DRUGS (13)
  1. SINEMET [Suspect]
     Indication: PARKINSONIAN GAIT
     Dosage: 1DOSAGE FORM: ONE-HALF TABLET EVERY MORNING
     Route: 048
     Dates: start: 20060616, end: 20060627
  2. CARVEDILOL [Suspect]
     Indication: CARDIAC FAILURE CONGESTIVE
     Route: 048
     Dates: start: 20060621, end: 20060627
  3. ACETAMINOPHEN [Concomitant]
  4. ASPIRIN [Concomitant]
  5. BICALUTAMIDE [Concomitant]
  6. BISACODYL [Concomitant]
  7. CITALOPRAM HYDROBROMIDE [Concomitant]
  8. CYANOCOBALAMIN [Concomitant]
  9. DOCUSATE SODIUM [Concomitant]
  10. FUROSEMIDE [Concomitant]
  11. ISOSORBIDE DINITRATE [Concomitant]
  12. LORAZEPAM [Concomitant]
  13. NITROGLYCERIN [Concomitant]

REACTIONS (6)
  - ACUTE MYOCARDIAL INFARCTION [None]
  - CARDIAC FAILURE CONGESTIVE [None]
  - CONSTIPATION [None]
  - FEELING ABNORMAL [None]
  - GAIT DISTURBANCE [None]
  - URINARY RETENTION [None]
